FAERS Safety Report 7363052-5 (Version None)
Quarter: 2011Q1

REPORT INFORMATION
  Report Type: 
  Country: None (occurrence: None)
  Receive Date: 20110321
  Receipt Date: 20110317
  Transmission Date: 20110831
  Serious: No
  Sender: FDA-Public Use
  Company Number: US-PFIZER INC-2011057237

PATIENT
  Sex: Female
  Weight: 72.562 kg

DRUGS (4)
  1. GABAPENTIN [Concomitant]
     Indication: SPINAL CORD INJURY
     Dosage: 600 MG, 3X/DAY
  2. METHADONE [Concomitant]
     Indication: PAIN
     Dosage: 5 MG, 3X/DAY
  3. METHOCARBAMOL [Concomitant]
     Indication: MUSCLE RELAXANT THERAPY
     Dosage: ONE PILL EVERY 4 HOURS AS NEEDED
  4. CHANTIX [Suspect]
     Indication: SMOKING CESSATION THERAPY
     Dosage: 0.5 MG, 1X/DAY
     Route: 048
     Dates: start: 20110301, end: 20110304

REACTIONS (2)
  - PAIN [None]
  - ABDOMINAL PAIN UPPER [None]
